FAERS Safety Report 12987117 (Version 1)
Quarter: 2016Q4

REPORT INFORMATION
  Report Type: Spontaneous
  Country: US (occurrence: US)
  Receive Date: 20161129
  Receipt Date: 20161129
  Transmission Date: 20170207
  Serious: Yes (Hospitalization)
  Sender: FDA-Public Use
  Company Number: None

PATIENT
  Age: 61 Year
  Sex: Female

DRUGS (9)
  1. Q-PAP [Concomitant]
     Active Substance: ACETAMINOPHEN
  2. GABAPENTIN. [Concomitant]
     Active Substance: GABAPENTIN
  3. BACLOFEN. [Concomitant]
     Active Substance: BACLOFEN
  4. MORPHINE SUL [Concomitant]
  5. MODAFINIL. [Concomitant]
     Active Substance: MODAFINIL
  6. AMPHETAMINE [Concomitant]
     Active Substance: AMPHETAMINE
  7. ESCITALOPRAM [Concomitant]
     Active Substance: ESCITALOPRAM OXALATE
  8. FENTANYL. [Concomitant]
     Active Substance: FENTANYL
  9. GENOTROPIN [Suspect]
     Active Substance: SOMATROPIN
     Indication: HYPOPITUITARISM
     Route: 058
     Dates: start: 20150924

REACTIONS (3)
  - Drug dose omission [None]
  - Nonspecific reaction [None]
  - Hospitalisation [None]

NARRATIVE: CASE EVENT DATE: 20131110
